FAERS Safety Report 16034542 (Version 5)
Quarter: 2019Q2

REPORT INFORMATION
  Report Type: Spontaneous
  Country: US (occurrence: US)
  Receive Date: 20190305
  Receipt Date: 20190528
  Transmission Date: 20190711
  Serious: Yes (Life-Threatening)
  Sender: FDA-Public Use
  Company Number: US-PFIZER INC-2019042788

PATIENT
  Age: 19 Year
  Sex: Female
  Weight: 70.31 kg

DRUGS (3)
  1. PRISTIQ EXTENDED-RELEASE [Suspect]
     Active Substance: DESVENLAFAXINE SUCCINATE
     Indication: DEPRESSION
     Dosage: 150 MG, UNK (QUANTITY FOR 90 DAYS-90)
     Route: 048
  2. PRISTIQ EXTENDED-RELEASE [Suspect]
     Active Substance: DESVENLAFAXINE SUCCINATE
     Indication: DEPRESSION
  3. PRISTIQ EXTENDED-RELEASE [Suspect]
     Active Substance: DESVENLAFAXINE SUCCINATE
     Indication: ANXIETY
     Dosage: 150 MG, 1X/DAY [50MG TABLET-3 TABLETS (150MG TOTAL) TAKEN BY MOUTH ONCE DAILY]
     Route: 048
     Dates: start: 2017

REACTIONS (5)
  - Malaise [Unknown]
  - Product dose omission [Unknown]
  - Product prescribing error [Unknown]
  - Prescribed overdose [Unknown]
  - Suicidal ideation [Unknown]

NARRATIVE: CASE EVENT DATE: 201901
